FAERS Safety Report 8584711-2 (Version None)
Quarter: 2012Q3

REPORT INFORMATION
  Report Type: 
  Country: None (occurrence: None)
  Receive Date: 20120810
  Receipt Date: 20120731
  Transmission Date: 20120928
  Serious: Yes (Hospitalization)
  Sender: FDA-Public Use
  Company Number: US-BAYER-2012-078662

PATIENT
  Age: 49 Year
  Sex: Female
  Weight: 96.054 kg

DRUGS (5)
  1. ROBAXIN [Concomitant]
     Indication: PAIN
     Dosage: 500 MG, PRN EVERY 12 HOURS
  2. YAZ [Suspect]
     Dosage: UNK
  3. DROSPIRENONE AND ETHINYL ESTRADIOL [Suspect]
  4. PERCOCET [Concomitant]
     Indication: PAIN
     Dosage: 5 MG, PRN EVERY 6 HOURS
     Route: 048
  5. OMEPRAZOLE [Concomitant]
     Dosage: 20 MG, QD

REACTIONS (2)
  - PULMONARY EMBOLISM [None]
  - DEEP VEIN THROMBOSIS [None]
